FAERS Safety Report 10532076 (Version 2)
Quarter: 2014Q4

REPORT INFORMATION
  Report Type: Spontaneous
  Country: US (occurrence: US)
  Receive Date: 20141021
  Receipt Date: 20141021
  Transmission Date: 20150529
  Serious: Yes (Disabling, Other)
  Sender: FDA-Public Use
  Company Number: US-PURDUE-USA-2014-0113228

PATIENT
  Age: 64 Year
  Sex: Female

DRUGS (7)
  1. TRAMADOL (SIMILAR TO NDA 21-745) [Suspect]
     Active Substance: TRAMADOL
     Indication: FIBROMYALGIA
  2. OXYCONTIN [Suspect]
     Active Substance: OXYCODONE HYDROCHLORIDE
     Indication: PAIN
     Dosage: 40 MG, TID
     Route: 048
  3. SAVELLA [Concomitant]
     Active Substance: MILNACIPRAN HYDROCHLORIDE
     Indication: FIBROMYALGIA
  4. SYNTHROID [Concomitant]
     Active Substance: LEVOTHYROXINE SODIUM
     Indication: HYPOTHYROIDISM
  5. PROZAC [Concomitant]
     Active Substance: FLUOXETINE HYDROCHLORIDE
     Indication: DEPRESSION
  6. ESTROGEN [Concomitant]
     Active Substance: ESTRONE\SUS SCROFA OVARY
     Indication: HOT FLUSH
  7. AMBIEN [Concomitant]
     Active Substance: ZOLPIDEM TARTRATE
     Indication: INSOMNIA

REACTIONS (21)
  - Cognitive disorder [Unknown]
  - Social avoidant behaviour [Unknown]
  - Poor quality sleep [Unknown]
  - Apathy [Unknown]
  - Fatigue [Unknown]
  - Headache [Unknown]
  - Chills [Unknown]
  - Inadequate analgesia [Unknown]
  - Drug withdrawal syndrome [Unknown]
  - Musculoskeletal stiffness [Unknown]
  - Depression [Unknown]
  - Activities of daily living impaired [Unknown]
  - Asthenia [Unknown]
  - Drug effect decreased [Unknown]
  - Impaired work ability [Unknown]
  - Night sweats [Unknown]
  - Anxiety [Unknown]
  - Vision blurred [Unknown]
  - Drug dependence [Unknown]
  - Pain [Unknown]
  - Restless legs syndrome [Unknown]
